FAERS Safety Report 13174387 (Version 1)
Quarter: 2017Q1

REPORT INFORMATION
  Report Type: Spontaneous
  Country: US (occurrence: US)
  Receive Date: 20170201
  Receipt Date: 20170201
  Transmission Date: 20170428
  Serious: No
  Sender: FDA-Public Use
  Company Number: None

PATIENT
  Age: 73 Year
  Sex: Female
  Weight: 70.31 kg

DRUGS (15)
  1. TYLENOL [Concomitant]
     Active Substance: ACETAMINOPHEN
  2. POMEGRANATE COMPLETE [Concomitant]
  3. JOINT COLLAGEN [Concomitant]
  4. ALEVE [Concomitant]
     Active Substance: NAPROXEN SODIUM
  5. MULTI-VITAMIN [Concomitant]
     Active Substance: .ALPHA.-TOCOPHEROL ACETATE, DL-\ASCORBIC ACID\CYANOCOBALAMIN\FLUORIDE ION\FOLIC ACID\NIACIN\PYRIDOXINE\RIBOFLAVIN\THIAMINE\VITAMIN A\VITAMIN D
  6. HCTZ 12.5MG CAPS [Suspect]
     Active Substance: HYDROCHLOROTHIAZIDE
     Indication: OEDEMA PERIPHERAL
     Route: 048
     Dates: start: 20170114, end: 20170115
  7. ADVIL [Concomitant]
     Active Substance: IBUPROFEN
  8. HOLY BASIL [Concomitant]
  9. ULTRA COLLAGEN BOOSTER [Concomitant]
  10. COD LIVER OIL GELS [Concomitant]
  11. SUPER OMEGA 3 EPA 300 / DHA 200 FORMULA FISH OIL [Concomitant]
     Active Substance: DOCONEXENT\ ICOSAPENT\ FISH OIL\ OMEGA-3 FATTY ACIDS
  12. BLUEBERRY EXTRACT [Concomitant]
  13. VITAMIN B [Concomitant]
     Active Substance: VITAMIN B
  14. VITAMIN C [Concomitant]
     Active Substance: ASCORBIC ACID
  15. VITAMIN E [Concomitant]
     Active Substance: .ALPHA.-TOCOPHEROL

REACTIONS (13)
  - Eye disorder [None]
  - Headache [None]
  - Abdominal discomfort [None]
  - Renal pain [None]
  - Anxiety [None]
  - Dry mouth [None]
  - Tinnitus [None]
  - Eye pain [None]
  - Burning sensation [None]
  - Vision blurred [None]
  - Abdominal pain upper [None]
  - Diarrhoea [None]
  - Retching [None]

NARRATIVE: CASE EVENT DATE: 20170114
